FAERS Safety Report 18908665 (Version 1)
Quarter: 2021Q1

REPORT INFORMATION
  Report Type: Spontaneous
  Country: US (occurrence: US)
  Receive Date: 20210217
  Receipt Date: 20210217
  Transmission Date: 20210420
  Serious: Yes (Other)
  Sender: FDA-Public Use
  Company Number: None

PATIENT
  Age: 49 Year
  Sex: Female
  Weight: 99.8 kg

DRUGS (11)
  1. OSELTAMIVIR 75 MG PO [Concomitant]
     Dates: start: 20210121, end: 20210126
  2. ZINC 140 MG PO [Concomitant]
     Dates: start: 20210120, end: 20210126
  3. SYMBICORT 80?4.5 MG INHALER [Concomitant]
     Dates: start: 20210121, end: 20210126
  4. AMPICILLIN?SULBACTAM 3 GM/NS 100 ML [Concomitant]
     Dates: start: 20210120, end: 20210122
  5. ALBUTEROL INHALER [Concomitant]
     Active Substance: ALBUTEROL
     Dates: start: 20210120, end: 20210126
  6. DEXAMETHASONE 6 MG IV [Concomitant]
     Dates: start: 20210120, end: 20210123
  7. ENOXAPARIN 40 MG SC [Concomitant]
     Dates: start: 20210120, end: 20210126
  8. REMDESIVIR. [Suspect]
     Active Substance: REMDESIVIR
     Indication: COVID-19
     Dosage: ?          OTHER FREQUENCY:ONCE;?
     Route: 042
     Dates: start: 20210121, end: 20210122
  9. REMDESIVIR. [Suspect]
     Active Substance: REMDESIVIR
     Indication: COVID-19
     Route: 042
     Dates: start: 20210122, end: 20210125
  10. ASCORBIC ACID 500 MG [Concomitant]
     Dates: start: 20210120, end: 20210126
  11. DOXYCYCLINE 100 MG/NS 100 ML [Concomitant]
     Dates: start: 20210120, end: 20210123

REACTIONS (2)
  - Incorrect dose administered [None]
  - Wrong schedule [None]

NARRATIVE: CASE EVENT DATE: 20210122
